FAERS Safety Report 4315741-4 (Version None)
Quarter: 2004Q1

REPORT INFORMATION
  Report Type: 
  Country: None (occurrence: None)
  Receive Date: 20040310
  Receipt Date: 20040305
  Transmission Date: 20041129
  Serious: Yes (Other)
  Sender: FDA-Public Use
  Company Number: STA-AE-04-MTX-092

PATIENT
  Age: 34 Year
  Sex: Female

DRUGS (1)
  1. LANTAREL (METHOTREXATE, UNSPEC) [Suspect]
     Indication: RHEUMATOID ARTHRITIS
     Dosage: 15 MG 1X PER 1  WK,

REACTIONS (1)
  - DERMATITIS ALLERGIC [None]
